FAERS Safety Report 8504374-1 (Version None)
Quarter: 2012Q3

REPORT INFORMATION
  Report Type: 
  Country: None (occurrence: None)
  Receive Date: 20120711
  Receipt Date: 20120702
  Transmission Date: 20120928
  Serious: Yes (Other)
  Sender: FDA-Public Use
  Company Number: US-CELGENEUS-163-21880-12070242

PATIENT
  Sex: Female
  Weight: 79.45 kg

DRUGS (4)
  1. REVLIMID [Suspect]
     Dosage: 25 MILLIGRAM
     Route: 048
     Dates: start: 20100831
  2. REVLIMID [Suspect]
     Dosage: 15 MILLIGRAM
     Route: 048
     Dates: start: 20110401
  3. ACYLOVIR [Concomitant]
     Route: 065
  4. OMEPRAZOLE [Concomitant]
     Route: 065

REACTIONS (2)
  - VISUAL FIELD DEFECT [None]
  - BLINDNESS TRANSIENT [None]
